FAERS Safety Report 8611226-5 (Version None)
Quarter: 2012Q3

REPORT INFORMATION
  Report Type: 
  Country: None (occurrence: None)
  Receive Date: 20120822
  Receipt Date: 20120816
  Transmission Date: 20120928
  Serious: Yes (Hospitalization)
  Sender: FDA-Public Use
  Company Number: US-PFIZER INC-2012201007

PATIENT
  Age: 48 Year
  Sex: Female

DRUGS (2)
  1. GLYBURIDE [Suspect]
     Dosage: 2 TABLETS
  2. CAFFEINE [Concomitant]
     Dosage: UNK

REACTIONS (3)
  - HYPOGLYCAEMIA [None]
  - UNRESPONSIVE TO STIMULI [None]
  - TOXICITY TO VARIOUS AGENTS [None]
